FAERS Safety Report 5474918-5 (Version None)
Quarter: 2007Q3

REPORT INFORMATION
  Report Type: 
  Country: None (occurrence: None)
  Receive Date: 20070831
  Receipt Date: 20070503
  Transmission Date: 20080115
  Serious: No
  Sender: FDA-Public Use
  Company Number: 240974

PATIENT
  Age: 81 Year
  Sex: Female

DRUGS (5)
  1. LUCENTIS [Suspect]
     Indication: MACULAR DEGENERATION
     Dosage: INTRAVITREAL
     Dates: start: 20070426
  2. LEVOTHYROXIN (LEVOTHYROXINE SODIUM) [Concomitant]
  3. ATENOLOL [Concomitant]
  4. LISINOPRIL [Concomitant]
  5. ALPRAZOLAM [Concomitant]

REACTIONS (3)
  - BACK PAIN [None]
  - NAUSEA [None]
  - URINARY TRACT INFECTION [None]
